FAERS Safety Report 9913142 (Version 1)
Quarter: 2014Q1

REPORT INFORMATION
  Report Type: Spontaneous
  Country: NL (occurrence: NL)
  Receive Date: 20140220
  Receipt Date: 20140220
  Transmission Date: 20141002
  Serious: Yes (Other)
  Sender: FDA-Public Use
  Company Number: NL-JNJFOC-20140209652

PATIENT
  Sex: 0

DRUGS (7)
  1. DOXORUBICIN [Suspect]
     Indication: CASTLEMAN^S DISEASE
     Route: 042
  2. CYCLOPHOSPHAMIDE [Suspect]
     Indication: CASTLEMAN^S DISEASE
     Route: 065
  3. VINCRISTINE [Suspect]
     Indication: CASTLEMAN^S DISEASE
     Route: 065
  4. PREDNISONE [Suspect]
     Indication: CASTLEMAN^S DISEASE
     Route: 065
  5. THALIDOMIDE [Suspect]
     Indication: CASTLEMAN^S DISEASE
     Route: 065
  6. MONOCLONAL ANTIBODIES [Suspect]
     Indication: CASTLEMAN^S DISEASE
     Route: 065
  7. STEROIDS NOS [Suspect]
     Indication: CASTLEMAN^S DISEASE
     Route: 065

REACTIONS (2)
  - Adverse event [Unknown]
  - Off label use [Unknown]
